FAERS Safety Report 4803787-9 (Version None)
Quarter: 2005Q4

REPORT INFORMATION
  Report Type: 
  Country: None (occurrence: None)
  Receive Date: 20051019
  Receipt Date: 20050725
  Transmission Date: 20060501
  Serious: Yes (Hospitalization)
  Sender: FDA-Public Use
  Company Number: US-MERCK-0507USA03903

PATIENT
  Age: 72 Year
  Sex: Female
  Weight: 61 kg

DRUGS (4)
  1. VIOXX [Suspect]
     Indication: ARTHRITIS
     Route: 048
     Dates: start: 20010402, end: 20040904
  2. VIOXX [Suspect]
     Indication: OSTEOARTHRITIS
     Route: 048
     Dates: start: 20010402, end: 20040904
  3. PRILOSEC [Concomitant]
     Route: 065
  4. TARKA [Concomitant]
     Indication: HYPERTENSION
     Route: 048
     Dates: start: 20011001, end: 20040901

REACTIONS (5)
  - ACUTE MYOCARDIAL INFARCTION [None]
  - ANXIETY [None]
  - CATARACT [None]
  - CORONARY ARTERY DISEASE [None]
  - CORONARY ARTERY OCCLUSION [None]
